FAERS Safety Report 22071773 (Version 3)
Quarter: 2024Q1

REPORT INFORMATION
  Report Type: Spontaneous
  Country: JP (occurrence: JP)
  Receive Date: 20230307
  Receipt Date: 20240211
  Transmission Date: 20240410
  Serious: Yes (Death)
  Sender: FDA-Public Use
  Company Number: JP-JNJFOC-20230316151

PATIENT
  Age: 87 Year
  Sex: Female
  Weight: 48.6 kg

DRUGS (18)
  1. RISPERDAL [Suspect]
     Active Substance: RISPERIDONE
     Indication: Delirium
     Dosage: THERAPY END DATE:17/FEB/2023
     Route: 048
     Dates: start: 20230216, end: 20230217
  2. VERAPAMIL HYDROCHLORIDE [Suspect]
     Active Substance: VERAPAMIL HYDROCHLORIDE
     Indication: Tachycardia
     Route: 048
     Dates: start: 20230210
  3. RABEPRAZOLE SODIUM [Concomitant]
     Active Substance: RABEPRAZOLE SODIUM
     Route: 048
  4. CARVEDILOL [Concomitant]
     Active Substance: CARVEDILOL
     Route: 048
  5. SPIRONOLACTONE [Concomitant]
     Active Substance: SPIRONOLACTONE
     Route: 048
  6. TOLVAPTAN [Concomitant]
     Active Substance: TOLVAPTAN
     Route: 065
  7. AZOSEMIDE [Concomitant]
     Active Substance: AZOSEMIDE
     Route: 048
  8. RIVAROXABAN [Concomitant]
     Active Substance: RIVAROXABAN
     Route: 048
  9. LINAGLIPTIN [Concomitant]
     Active Substance: LINAGLIPTIN
     Route: 048
  10. SACUBITRIL\VALSARTAN [Concomitant]
     Active Substance: SACUBITRIL\VALSARTAN
     Route: 048
  11. FERRIC SODIUM CITRATE [Concomitant]
     Active Substance: FERRIC SODIUM CITRATE
     Route: 048
  12. CLOSTRIDIUM BUTYRICUM SPORES STRAIN M-55 [Concomitant]
     Active Substance: CLOSTRIDIUM BUTYRICUM SPORES STRAIN M-55
     Route: 048
  13. SENNOSIDES A AND B [Concomitant]
     Active Substance: SENNOSIDES A AND B
     Dosage: THERAPY START DATE: /FEB/2023
     Route: 048
  14. KETOPROFEN [Concomitant]
     Active Substance: KETOPROFEN
     Dosage: THERAPY START DATE : /FEB/2023
     Route: 062
  15. KN NO.1 [Concomitant]
     Dosage: THERAPY START DATE /FEB/2023
     Route: 065
  16. NYROZIN [Concomitant]
     Dosage: THERAPY START DAT: /FEB/2023
     Route: 065
  17. CEFTRIAXONE [Concomitant]
     Active Substance: CEFTRIAXONE\CEFTRIAXONE SODIUM
     Dosage: THERAPY START DATE: /FEB/2023
     Route: 065
  18. DENOSUMAB [Concomitant]
     Active Substance: DENOSUMAB
     Indication: Osteoporosis
     Route: 065
     Dates: start: 20230204

REACTIONS (2)
  - Neuroleptic malignant syndrome [Fatal]
  - Off label use [Unknown]

NARRATIVE: CASE EVENT DATE: 20230216
